FAERS Safety Report 7854737-2 (Version None)
Quarter: 2011Q4

REPORT INFORMATION
  Report Type: 
  Country: None (occurrence: None)
  Receive Date: 20111026
  Receipt Date: 20110817
  Transmission Date: 20120403
  Serious: No
  Sender: FDA-Public Use
  Company Number: US-MUTUAL PHARMACEUTICAL COMPANY, INC.-CLCY20110106

PATIENT
  Sex: Male
  Weight: 99.88 kg

DRUGS (2)
  1. FEBUXOSTAT [Concomitant]
     Indication: PRODUCT USED FOR UNKNOWN INDICATION
     Route: 065
  2. COLCRYS [Suspect]
     Indication: GOUT
     Route: 048
     Dates: start: 20110816

REACTIONS (3)
  - PARAESTHESIA [None]
  - MUSCULAR WEAKNESS [None]
  - HYPOAESTHESIA [None]
